FAERS Safety Report 6057906-X (Version None)
Quarter: 2009Q1

REPORT INFORMATION
  Report Type: 
  Country: None (occurrence: None)
  Receive Date: 20090129
  Receipt Date: 20090121
  Transmission Date: 20090719
  Serious: Yes (Other)
  Sender: FDA-Public Use
  Company Number: US-GENENTECH-275996

PATIENT
  Sex: Female

DRUGS (1)
  1. AVASTIN [Suspect]
     Indication: DRUG USE FOR UNKNOWN INDICATION
     Dosage: UNKNOWN

REACTIONS (1)
  - ASCITES [None]
